FAERS Safety Report 10560458 (Version 2)
Quarter: 2014Q4

REPORT INFORMATION
  Report Type: Report from Study
  Country: US (occurrence: US)
  Receive Date: 20141103
  Receipt Date: 20141103
  Transmission Date: 20150529
  Serious: Yes (Hospitalization)
  Sender: FDA-Public Use
  Company Number: US-ABBVIE-14K-163-1294863-00

PATIENT
  Sex: Female

DRUGS (1)
  1. HUMIRA [Suspect]
     Active Substance: ADALIMUMAB
     Indication: PSORIASIS
     Route: 065
     Dates: start: 20130820, end: 201409

REACTIONS (5)
  - Diarrhoea [Not Recovered/Not Resolved]
  - Musculoskeletal pain [Unknown]
  - Malaise [Unknown]
  - Blood potassium decreased [Unknown]
  - Renal failure [Unknown]

NARRATIVE: CASE EVENT DATE: 2014
